FAERS Safety Report 5706379-2 (Version None)
Quarter: 2008Q2

REPORT INFORMATION
  Report Type: 
  Country: None (occurrence: None)
  Receive Date: 20080411
  Receipt Date: 20080402
  Transmission Date: 20081010
  Serious: Yes (Hospitalization)
  Sender: FDA-Public Use
  Company Number: 2007-03392

PATIENT
  Age: 58 Year

DRUGS (7)
  1. VELCADE [Suspect]
     Indication: MULTIPLE MYELOMA
  2. DOXORUBICIN HCL [Suspect]
  3. DEXAMETHASONE [Suspect]
  4. MELPHALAN (MELPHALAN) VIAL [Suspect]
     Indication: MULTIPLE MYELOMA
  5. PANTOPRAZOLE SODIUM [Concomitant]
  6. COTRIM FORTE (SULFAMETHAZOLE, TRIMETHOPRIM) [Concomitant]
  7. METOPROLOL TARTRATE [Concomitant]

REACTIONS (6)
  - APLASIA [None]
  - DIARRHOEA [None]
  - PYREXIA [None]
  - RENAL FAILURE ACUTE [None]
  - STEM CELL TRANSPLANT [None]
  - VOMITING [None]
